FAERS Safety Report 5287842-8 (Version None)
Quarter: 2007Q2

REPORT INFORMATION
  Report Type: 
  Country: None (occurrence: None)
  Receive Date: 20070405
  Receipt Date: 20070326
  Transmission Date: 20071010
  Serious: Yes (Hospitalization)
  Sender: FDA-Public Use
  Company Number: PHRM2007FR00951

PATIENT
  Age: 74 Year
  Sex: Male

DRUGS (2)
  1. ZOMETA [Suspect]
     Indication: METASTASES TO BONE
     Dosage: 4 MG
     Route: 042
     Dates: start: 20070110
  2. ENANTONE [Concomitant]
     Indication: PROSTATE CANCER METASTATIC
     Dosage: 1 DF, Q3MO

REACTIONS (7)
  - ARTHRALGIA [None]
  - CHEST PAIN [None]
  - HYPERSENSITIVITY [None]
  - NECK PAIN [None]
  - PYREXIA [None]
  - RASH [None]
  - SENSE OF OPPRESSION [None]
